FAERS Safety Report 10463151 (Version 2)
Quarter: 2014Q3

REPORT INFORMATION
  Report Type: Spontaneous
  Country: KR (occurrence: KR)
  Receive Date: 20140919
  Receipt Date: 20140928
  Transmission Date: 20150326
  Serious: Yes (Death)
  Sender: FDA-Public Use
  Company Number: KR-MERCK-1409KOR005840

PATIENT
  Age: 78 Year
  Sex: Male
  Weight: 52 kg

DRUGS (13)
  1. ROCURONIUM BROMIDE. [Suspect]
     Active Substance: ROCURONIUM BROMIDE
     Dosage: 10 MG, FREQUENCY: 1
     Route: 042
     Dates: start: 20140828, end: 20140828
  2. PANTOLOC [Concomitant]
     Active Substance: PANTOPRAZOLE SODIUM
     Indication: PROPHYLAXIS AGAINST GASTROINTESTINAL ULCER
     Dosage: 40 MG, FREQUENCY: 1
     Route: 042
     Dates: start: 20140901
  3. CEFAZEDONE [Concomitant]
     Active Substance: CEFAZEDONE
     Indication: INFECTION PROPHYLAXIS
     Dosage: 1 G, FREQUENCY: 3, ROUTE:INF
     Dates: start: 20140828, end: 20140829
  4. LASIX [Concomitant]
     Active Substance: FUROSEMIDE
     Dosage: 40 MG, FREQUENCY: 1
     Dates: start: 20140901
  5. ROCURONIUM BROMIDE. [Suspect]
     Active Substance: ROCURONIUM BROMIDE
     Indication: MUSCLE RELAXANT THERAPY
     Dosage: 50 MG, FREQUENCY: 1
     Route: 042
     Dates: start: 20140828, end: 20140828
  6. KMOXILIN [Concomitant]
     Indication: INFECTION PROPHYLAXIS
     Dosage: 1.2 G, FREQUENCY: 3
     Route: 042
     Dates: start: 20140828, end: 20140828
  7. GASTER [Concomitant]
     Active Substance: FAMOTIDINE
     Indication: PROPHYLAXIS
     Dosage: 1 DF, FREQUENCY; 2
     Route: 048
     Dates: start: 20140822, end: 20140901
  8. CEFTRIAXONE SODIUM. [Concomitant]
     Active Substance: CEFTRIAXONE SODIUM
     Indication: INFECTION PROPHYLAXIS
     Dosage: 1 G, FREQUENCY: 3
     Route: 042
     Dates: start: 20140829, end: 20140903
  9. ROCURONIUM BROMIDE. [Suspect]
     Active Substance: ROCURONIUM BROMIDE
     Indication: ENDOTRACHEAL INTUBATION
     Dosage: 10 MG, FREQUENCY: 1
     Route: 042
     Dates: start: 20140828, end: 20140828
  10. MORPHINE HYDROCHLORIDE [Concomitant]
     Active Substance: MORPHINE HYDROCHLORIDE
     Indication: PAIN MANAGEMENT
     Dosage: 5 MG, FREQUENCY: 1
     Route: 042
     Dates: start: 20140828, end: 20140828
  11. BRIDION [Suspect]
     Active Substance: SUGAMMADEX
     Indication: NEUROMUSCULAR BLOCKADE REVERSAL
     Dosage: 2 MG/KG, 104 MG, ONCE
     Route: 042
     Dates: start: 20140828, end: 20140828
  12. DICKNOL [Concomitant]
     Indication: PAIN MANAGEMENT
     Dosage: 180 MG, FREQUENCY: 1, ROUTE:INF
     Dates: start: 20140826, end: 20140901
  13. ULTRACET [Concomitant]
     Active Substance: ACETAMINOPHEN\TRAMADOL HYDROCHLORIDE
     Indication: PAIN MANAGEMENT
     Dosage: 1 DF, FREQUENCY: 2
     Route: 048
     Dates: start: 20140822, end: 20140901

REACTIONS (1)
  - Haemoptysis [Fatal]

NARRATIVE: CASE EVENT DATE: 20140901
